FAERS Safety Report 7395296-0 (Version None)
Quarter: 2011Q2

REPORT INFORMATION
  Report Type: 
  Country: None (occurrence: None)
  Receive Date: 20110405
  Receipt Date: 20110402
  Transmission Date: 20111010
  Serious: No
  Sender: FDA-Public Use
  Company Number: US-PFIZER INC-2011073369

PATIENT
  Sex: Male
  Weight: 64.399 kg

DRUGS (2)
  1. VIAGRA [Suspect]
     Indication: ERECTILE DYSFUNCTION
     Dosage: 50 MG, AS NEEDED
     Route: 048
     Dates: start: 20110301
  2. RISPERDAL [Suspect]
     Dosage: UNK

REACTIONS (1)
  - ERECTILE DYSFUNCTION [None]
